FAERS Safety Report 5262959-2 (Version None)
Quarter: 2007Q1

REPORT INFORMATION
  Report Type: 
  Country: None (occurrence: None)
  Receive Date: 20070312
  Receipt Date: 20070305
  Transmission Date: 20070707
  Serious: Yes (Other)
  Sender: FDA-Public Use
  Company Number: US-SHR-US-2007-000354

PATIENT
  Age: 70 Year
  Sex: Male
  Weight: 136 kg

DRUGS (8)
  1. LEUKINE [Suspect]
     Dosage: UNK, UNK
     Route: 058
     Dates: start: 20061106, end: 20061107
  2. CARBOPLATIN [Concomitant]
     Dosage: 920 MG, DAY 1, Q3 WEEKS
     Route: 042
     Dates: start: 20061103, end: 20061218
  3. DOCETAXEL [Concomitant]
     Dosage: 75 MCG/M2 Q3 WEEKS
     Route: 042
     Dates: start: 20061103, end: 20070129
  4. AVASTIN [Concomitant]
     Dosage: 15 MG/KG Q3 WEEKS
     Route: 042
     Dates: start: 20061103, end: 20070129
  5. ZOFRAN [Concomitant]
     Indication: PREMEDICATION
     Dosage: 32 MG, UNK
     Route: 042
     Dates: start: 20061103, end: 20070129
  6. DECADRON                                /CAN/ [Concomitant]
     Indication: PREMEDICATION
     Dosage: 10 MG, UNK
     Route: 042
     Dates: start: 20061103, end: 20070129
  7. BENADRYL ^ACHE^ [Concomitant]
     Indication: PREMEDICATION
     Dosage: 25 MG, UNK
     Route: 042
     Dates: start: 20061103, end: 20070127
  8. TYLENOL [Concomitant]
     Indication: PREMEDICATION
     Dosage: 650 MG, UNK
     Route: 048
     Dates: start: 20061103, end: 20070127

REACTIONS (1)
  - ATRIAL FIBRILLATION [None]
